FAERS Safety Report 20014208 (Version 3)
Quarter: 2022Q2

REPORT INFORMATION
  Report Type: Spontaneous
  Country: US (occurrence: US)
  Receive Date: 20211029
  Receipt Date: 20220518
  Transmission Date: 20220720
  Serious: No
  Sender: FDA-Public Use
  Company Number: US-PFIZER INC-2019548917

PATIENT
  Age: 64 Year
  Sex: Female
  Weight: 72.57 kg

DRUGS (4)
  1. PREMARIN [Suspect]
     Active Substance: ESTROGENS, CONJUGATED
     Indication: Menopausal symptoms
     Dosage: 0.625 MG, 2X/DAY (TAKE 1 TABLET BY ORAL ROUTE 2 TIMES A DAY FOR 90 DAYS/ QUANTITY FOR 90 DAYS : 200)
     Route: 048
     Dates: start: 20160818
  2. PREMARIN [Suspect]
     Active Substance: ESTROGENS, CONJUGATED
     Indication: Anxiety
     Dosage: 0.625 MG, 1X/DAY (ONCE DAILY)
     Route: 048
  3. PREMARIN [Suspect]
     Active Substance: ESTROGENS, CONJUGATED
     Indication: Vulvovaginal dryness
  4. PREMARIN [Suspect]
     Active Substance: ESTROGENS, CONJUGATED
     Indication: Hot flush

REACTIONS (2)
  - Off label use [Unknown]
  - Affect lability [Unknown]
